FAERS Safety Report 23951274 (Version 1)
Quarter: 2024Q2

REPORT INFORMATION
  Report Type: Spontaneous
  Country: US (occurrence: US)
  Receive Date: 20240607
  Receipt Date: 20240607
  Transmission Date: 20240716
  Serious: Yes (Other)
  Sender: FDA-Public Use
  Company Number: US-BRISTOL-MYERS SQUIBB COMPANY-2024-088495

PATIENT
  Age: 76 Year
  Sex: Female
  Weight: 44.8 kg

DRUGS (1)
  1. BREYANZI [Suspect]
     Active Substance: LISOCABTAGENE MARALEUCEL
     Indication: B-cell lymphoma
     Dosage: DOSE : 50X10^6TH CAR POSITIVE T CELLS;     FREQ : ONE TIME DOSE?STRENGTH: CAR POSITIVE VIABLE T CELL
     Route: 042

REACTIONS (2)
  - Immune effector cell-associated neurotoxicity syndrome [Unknown]
  - Weight decreased [Unknown]

NARRATIVE: CASE EVENT DATE: 20240504
